FAERS Safety Report 4902814-8 (Version None)
Quarter: 2006Q1

REPORT INFORMATION
  Report Type: 
  Country: None (occurrence: None)
  Receive Date: 20060207
  Receipt Date: 20060126
  Transmission Date: 20060701
  Serious: Yes (Other)
  Sender: FDA-Public Use
  Company Number: US-JNJFOC-20060105984

PATIENT
  Age: 45 Year
  Sex: Male

DRUGS (3)
  1. ULTRAM [Suspect]
     Indication: PAIN
     Route: 048
     Dates: start: 20040101
  2. CELEBREX [Concomitant]
     Indication: PAIN
  3. PROTONIX [Concomitant]
     Route: 048

REACTIONS (1)
  - BLINDNESS [None]
